FAERS Safety Report 11934168 (Version 1)
Quarter: 2016Q1

REPORT INFORMATION
  Report Type: Spontaneous
  Country: US (occurrence: US)
  Receive Date: 20160121
  Receipt Date: 20160121
  Transmission Date: 20160526
  Serious: No
  Sender: FDA-Public Use
  Company Number: US-PERRIGO-15US001695

PATIENT
  Age: 87 Year
  Sex: Female

DRUGS (1)
  1. ACETAMINOPHEN-ASPIRIN-CAFFEINE 6X0 [Suspect]
     Active Substance: ACETAMINOPHEN\ASPIRIN\CAFFEINE
     Indication: PAIN
     Dosage: 1.5 TABLETS, BID
     Route: 048

REACTIONS (3)
  - Incorrect dose administered [Unknown]
  - Wrong technique in product usage process [Unknown]
  - Renal function test abnormal [Unknown]

NARRATIVE: CASE EVENT DATE: 201501
